FAERS Safety Report 6999483-2 (Version None)
Quarter: 2010Q3

REPORT INFORMATION
  Report Type: 
  Country: None (occurrence: None)
  Receive Date: 20100920
  Receipt Date: 20071112
  Transmission Date: 20110219
  Serious: Yes (Other)
  Sender: FDA-Public Use
  Company Number: US-ASTRAZENECA-2007UW01758

PATIENT
  Age: 19582 Day
  Sex: Female
  Weight: 107 kg

DRUGS (10)
  1. SEROQUEL [Suspect]
     Indication: BIPOLAR DISORDER
     Route: 048
     Dates: start: 19991207, end: 20060501
  2. SEROQUEL [Suspect]
     Dosage: 100MG -200MG
     Route: 048
     Dates: start: 19991207
  3. PREVACID [Concomitant]
     Dates: start: 20050812
  4. PAXIL [Concomitant]
     Dosage: 20MG -30MG
     Dates: start: 19980925
  5. WELLBUTRIN [Concomitant]
     Indication: BIPOLAR DISORDER
     Dosage: 100MG-400MG
     Dates: start: 19980105
  6. WELLBUTRIN [Concomitant]
     Indication: SLEEP DISORDER
     Dosage: 100MG-400MG
     Dates: start: 19980105
  7. VISTARIL [Concomitant]
     Dosage: 2 TABLETS AT NIGHT
     Dates: start: 20050812
  8. NEURONTIN [Concomitant]
     Dosage: 300MG -400MG
     Dates: start: 19980925
  9. CELEBREX [Concomitant]
     Route: 048
     Dates: start: 20060519
  10. SYNTHROID [Concomitant]
     Dosage: 0.025MG - 0.05MG
     Dates: start: 19990212

REACTIONS (2)
  - DIABETES MELLITUS INADEQUATE CONTROL [None]
  - TYPE 2 DIABETES MELLITUS [None]
